FAERS Safety Report 7152016-2 (Version None)
Quarter: 2010Q4

REPORT INFORMATION
  Report Type: 
  Country: None (occurrence: None)
  Receive Date: 20101123
  Receipt Date: 20101116
  Transmission Date: 20110411
  Serious: Yes (Life-Threatening, Hospitalization)
  Sender: FDA-Public Use
  Company Number: 2010SP060421

PATIENT
  Age: 29 Year
  Sex: Female
  Weight: 86.1834 kg

DRUGS (2)
  1. MIRCETTE [Suspect]
     Indication: PRODUCT USED FOR UNKNOWN INDICATION
     Dosage: ; QD; PO
     Route: 048
  2. VENTOLIN [Concomitant]

REACTIONS (2)
  - BRAIN INJURY [None]
  - MIGRAINE [None]
